FAERS Safety Report 8191973-2 (Version None)
Quarter: 2012Q1

REPORT INFORMATION
  Report Type: 
  Country: None (occurrence: None)
  Receive Date: 20120307
  Receipt Date: 20120301
  Transmission Date: 20120608
  Serious: Yes (Other)
  Sender: FDA-Public Use
  Company Number: PHHY2012AR018656

PATIENT
  Sex: Female

DRUGS (2)
  1. ANTICOAGULANTS [Concomitant]
  2. DIOVAN [Suspect]
     Indication: HYPERTENSION
     Dosage: 80 MG, ONE AND A HALF TABLET DAILY

REACTIONS (4)
  - BLOOD PRESSURE INCREASED [None]
  - FALL [None]
  - LIGAMENT SPRAIN [None]
  - NERVOUSNESS [None]
